FAERS Safety Report 20684153 (Version 4)
Quarter: 2022Q2

REPORT INFORMATION
  Report Type: Spontaneous
  Country: JP (occurrence: JP)
  Receive Date: 20220407
  Receipt Date: 20220427
  Transmission Date: 20220721
  Serious: No
  Sender: FDA-Public Use
  Company Number: JP-GSKJP-JP2022JPN057697

PATIENT
  Sex: Male

DRUGS (2)
  1. BOTOX [Suspect]
     Active Substance: ONABOTULINUMTOXINA
     Indication: Muscle spasticity
     Dosage: 300 UNITS, SINGLE
     Route: 030
     Dates: start: 20211223, end: 20211223
  2. BOTOX [Suspect]
     Active Substance: ONABOTULINUMTOXINA
     Indication: Spinal osteoarthritis

REACTIONS (3)
  - Monoplegia [Unknown]
  - Pain [Unknown]
  - Muscle disorder [Unknown]
